FAERS Safety Report 21292456 (Version 1)
Quarter: 2022Q3

REPORT INFORMATION
  Report Type: Report from Study
  Country: CA (occurrence: CA)
  Receive Date: 20220905
  Receipt Date: 20220905
  Transmission Date: 20221026
  Serious: Yes (Other)
  Sender: FDA-Public Use
  Company Number: CA-JNJFOC-20220615574

PATIENT
  Age: 13 Year
  Sex: Male
  Weight: 31 kg

DRUGS (2)
  1. REMICADE [Suspect]
     Active Substance: INFLIXIMAB
     Indication: Crohn^s disease
     Dosage: 6MG/KG AT WEEK 0, 2 AND 6 AND THEN EVERY 6 WEEKS.
     Route: 042
     Dates: start: 20220616
  2. REMICADE [Suspect]
     Active Substance: INFLIXIMAB
     Dosage: RELOAD AT 400MG 0,2,6 THEN EVERY 4 WEEKS
     Route: 042
     Dates: start: 2022

REACTIONS (3)
  - Crohn^s disease [Unknown]
  - Drug level abnormal [Unknown]
  - Off label use [Unknown]

NARRATIVE: CASE EVENT DATE: 20220101
